FAERS Safety Report 5731707-1 (Version None)
Quarter: 2008Q2

REPORT INFORMATION
  Report Type: 
  Country: None (occurrence: None)
  Receive Date: 20080506
  Receipt Date: 20080506
  Transmission Date: 20081010
  Serious: Yes (Other)
  Sender: FDA-Public Use
  Company Number: None

PATIENT
  Age: 34 Year
  Sex: Female
  Weight: 88.4514 kg

DRUGS (1)
  1. CHANTIX [Suspect]
     Indication: SMOKING CESSATION THERAPY
     Dosage: 1 TABLET -MG- 2 X DAY PO
     Route: 048

REACTIONS (6)
  - ANXIETY [None]
  - FEAR [None]
  - FEELING ABNORMAL [None]
  - FEELING GUILTY [None]
  - PALPITATIONS [None]
  - PANIC DISORDER [None]
